FAERS Safety Report 4616600-X (Version None)
Quarter: 2005Q1

REPORT INFORMATION
  Report Type: 
  Country: None (occurrence: None)
  Receive Date: 20050318
  Receipt Date: 20050306
  Transmission Date: 20050727
  Serious: Yes (Other)
  Sender: FDA-Public Use
  Company Number: 2005043335

PATIENT
  Age: 70 Year
  Sex: Female

DRUGS (2)
  1. TIKOSYN [Suspect]
     Indication: ILL-DEFINED DISORDER
     Dosage: 1000 MCG (500 MCG, 2 IN 24
     Dates: start: 20050101
  2. DRUG, UNSPECIFIED [Concomitant]

REACTIONS (2)
  - EYE PAIN [None]
  - VISION BLURRED [None]
